FAERS Safety Report 12309808 (Version 1)
Quarter: 2016Q2

REPORT INFORMATION
  Report Type: Spontaneous
  Country: US (occurrence: US)
  Receive Date: 20160427
  Receipt Date: 20160427
  Transmission Date: 20160815
  Serious: Yes (Hospitalization)
  Sender: FDA-Public Use
  Company Number: US-BEH-2016061565

PATIENT
  Age: 66 Year
  Sex: Male
  Weight: 85.7 kg

DRUGS (25)
  1. NORMAL SALINE [Concomitant]
     Active Substance: SODIUM CHLORIDE
  2. MECLIZINE [Concomitant]
     Active Substance: MECLIZINE HYDROCHLORIDE
  3. HEPARIN [Concomitant]
     Active Substance: HEPARIN SODIUM
  4. MUCINEX [Concomitant]
     Active Substance: GUAIFENESIN
  5. LISINOPRIL. [Concomitant]
     Active Substance: LISINOPRIL
  6. OXYGEN. [Concomitant]
     Active Substance: OXYGEN
  7. LEVOFLOXACIN. [Concomitant]
     Active Substance: LEVOFLOXACIN
  8. ALBUTEROL. [Concomitant]
     Active Substance: ALBUTEROL
  9. ZEMAIRA [Suspect]
     Active Substance: .ALPHA.1-PROTEINASE INHIBITOR HUMAN
     Indication: ESSENTIAL HYPERTENSION
     Route: 042
     Dates: start: 20110325
  10. DOXYCYCLINE HYCLATE. [Concomitant]
     Active Substance: DOXYCYCLINE HYCLATE
  11. FLONASE [Concomitant]
     Active Substance: FLUTICASONE PROPIONATE
  12. FLUTICASONE [Concomitant]
     Active Substance: FLUTICASONE\FLUTICASONE PROPIONATE
  13. DALIRESP [Concomitant]
     Active Substance: ROFLUMILAST
  14. ASPIRIN. [Concomitant]
     Active Substance: ASPIRIN
  15. HEPARIN [Concomitant]
     Active Substance: HEPARIN SODIUM
  16. LUMIGAN [Concomitant]
     Active Substance: BIMATOPROST
  17. ZEMAIRA [Suspect]
     Active Substance: .ALPHA.1-PROTEINASE INHIBITOR HUMAN
     Indication: ESSENTIAL HYPERTENSION
     Route: 042
     Dates: start: 20110325
  18. ZEMAIRA [Suspect]
     Active Substance: .ALPHA.1-PROTEINASE INHIBITOR HUMAN
     Indication: GASTROOESOPHAGEAL REFLUX DISEASE
     Route: 042
     Dates: start: 20110325
  19. PREDNISONE. [Concomitant]
     Active Substance: PREDNISONE
  20. DIPHENHYDRAMINE. [Concomitant]
     Active Substance: DIPHENHYDRAMINE
  21. EPINEPHRINE. [Concomitant]
     Active Substance: EPINEPHRINE
  22. SODIUM CHLORIDE. [Concomitant]
     Active Substance: SODIUM CHLORIDE
  23. ENDOCET [Concomitant]
     Active Substance: ACETAMINOPHEN\OXYCODONE HYDROCHLORIDE
  24. LIDOCAINE. [Concomitant]
     Active Substance: LIDOCAINE
  25. PLAVIX [Concomitant]
     Active Substance: CLOPIDOGREL BISULFATE

REACTIONS (2)
  - Respiratory distress [Recovered/Resolved]
  - Upper respiratory tract infection [Recovered/Resolved]

NARRATIVE: CASE EVENT DATE: 20160410
